FAERS Safety Report 9984948 (Version 1)
Quarter: 2014Q1

REPORT INFORMATION
  Report Type: Report from Study
  Country: US (occurrence: US)
  Receive Date: 20140307
  Receipt Date: 20140307
  Transmission Date: 20141002
  Serious: No
  Sender: FDA-Public Use
  Company Number: US-ABBVIE-13P-163-1184397-00

PATIENT
  Sex: Male
  Weight: 102.15 kg

DRUGS (9)
  1. HUMIRA [Suspect]
     Indication: PSORIASIS
     Dates: start: 20130115, end: 20130115
  2. HUMIRA [Suspect]
     Dates: start: 20130122
  3. LISINOPRIL [Concomitant]
     Indication: HYPERTENSION
  4. FENOFIBRATE [Concomitant]
     Indication: BLOOD CHOLESTEROL INCREASED
  5. NEXIUM [Concomitant]
     Indication: GASTROOESOPHAGEAL REFLUX DISEASE
  6. ZYPREXA [Concomitant]
     Indication: AFFECTIVE DISORDER
  7. PRAVASTATIN [Concomitant]
     Indication: BLOOD CHOLESTEROL INCREASED
  8. PROZAC [Concomitant]
     Indication: OBSESSIVE-COMPULSIVE DISORDER
  9. SYNTHROID [Concomitant]
     Indication: HYPOTHYROIDISM

REACTIONS (2)
  - Psoriasis [Not Recovered/Not Resolved]
  - Psoriasis [Not Recovered/Not Resolved]
